FAERS Safety Report 14004057 (Version 2)
Quarter: 2018Q1

REPORT INFORMATION
  Report Type: Spontaneous
  Country: FR (occurrence: FR)
  Receive Date: 20170923
  Receipt Date: 20180122
  Transmission Date: 20180508
  Serious: Yes (Other)
  Sender: FDA-Public Use
  Company Number: FR-MERCK KGAA-2027479

PATIENT
  Age: 79 Year
  Sex: Male

DRUGS (7)
  1. CANDESARTAN. [Concomitant]
     Active Substance: CANDESARTAN
  2. NOVOTHYROX [Suspect]
     Active Substance: LEVOTHYROXINE SODIUM
     Indication: THYROID CALCIFICATION
  3. NOVOTHYROX [Suspect]
     Active Substance: LEVOTHYROXINE SODIUM
  4. RILMENIDINE [Concomitant]
     Active Substance: RILMENIDINE
  5. NOVOTHYROX [Suspect]
     Active Substance: LEVOTHYROXINE SODIUM
  6. ONGLYZAR [Concomitant]
  7. MANIDIPINE [Concomitant]
     Active Substance: MANIDIPINE

REACTIONS (15)
  - Somnolence [Not Recovered/Not Resolved]
  - Blood thyroid stimulating hormone decreased [Not Recovered/Not Resolved]
  - Thrombosis [None]
  - Weight increased [None]
  - Weight decreased [Recovered/Resolved]
  - Tremor [Recovered/Resolved]
  - Disturbance in attention [Recovered/Resolved]
  - Dysgraphia [Recovered/Resolved]
  - Fatigue [Not Recovered/Not Resolved]
  - Suicidal ideation [Recovered/Resolved]
  - Tachyarrhythmia [Recovered/Resolved]
  - Angioedema [Not Recovered/Not Resolved]
  - Decreased appetite [Recovered/Resolved]
  - Nausea [None]
  - Blood glucose increased [Recovered/Resolved]

NARRATIVE: CASE EVENT DATE: 2017
